FAERS Safety Report 8979272 (Version 1)
Quarter: 2012Q4

REPORT INFORMATION
  Report Type: 
  Country: AU (occurrence: AU)
  Receive Date: 20121221
  Receipt Date: 20121221
  Transmission Date: 20130627
  Serious: Yes (Hospitalization)
  Sender: FDA-Public Use
  Company Number: AU-NOVOPROD-367273

PATIENT
  Sex: Female

DRUGS (3)
  1. NOVORAPID [Suspect]
     Indication: TYPE 2 DIABETES MELLITUS
     Dosage: 90 - 100 units per injection, tid
     Route: 058
  2. LEVEMIR FLEXPEN [Suspect]
     Indication: TYPE 2 DIABETES MELLITUS
     Dosage: 200 U, (90U + 110U) bid
     Route: 058
  3. METFORMIN [Concomitant]

REACTIONS (2)
  - Cellulitis [Unknown]
  - Blood glucose increased [Unknown]
